FAERS Safety Report 7775566-4 (Version None)
Quarter: 2011Q3

REPORT INFORMATION
  Report Type: 
  Country: None (occurrence: None)
  Receive Date: 20110923
  Receipt Date: 20110920
  Transmission Date: 20111222
  Serious: Yes (Hospitalization, Other)
  Sender: FDA-Public Use
  Company Number: CZ-ABBOTT-11P-217-0855162-00

PATIENT
  Sex: Female
  Weight: 66 kg

DRUGS (2)
  1. AZAPRINE [Concomitant]
     Indication: PRODUCT USED FOR UNKNOWN INDICATION
  2. HUMIRA [Suspect]
     Indication: PSORIATIC ARTHROPATHY
     Route: 058
     Dates: start: 20110711

REACTIONS (18)
  - OXYGEN SATURATION DECREASED [None]
  - PALLOR [None]
  - NAUSEA [None]
  - HYPOTENSION [None]
  - BRONCHITIS [None]
  - INJECTION SITE RASH [None]
  - DYSPNOEA [None]
  - C-REACTIVE PROTEIN INCREASED [None]
  - FIBRIN D DIMER INCREASED [None]
  - BODY TEMPERATURE INCREASED [None]
  - HEADACHE [None]
  - TONSILLAR ULCER [None]
  - PHARYNGEAL ERYTHEMA [None]
  - INJECTION SITE PAIN [None]
  - ASTHENIA [None]
  - COUGH [None]
  - TONSILLAR HYPERTROPHY [None]
  - MENINGIOMA [None]
